FAERS Safety Report 8804793 (Version 2)
Quarter: 2014Q2

REPORT INFORMATION
  Report Type: Report from Study
  Country: US (occurrence: US)
  Receive Date: 20120924
  Receipt Date: 20140103
  Transmission Date: 20141212
  Serious: Yes (Death)
  Sender: FDA-Public Use
  Company Number: US-ROCHE-1125625

PATIENT
  Sex: Female

DRUGS (3)
  1. AVASTIN [Suspect]
     Indication: BRAIN NEOPLASM MALIGNANT
     Route: 065
     Dates: start: 20111201
  2. AVASTIN [Suspect]
     Indication: MALIGNANT MELANOMA
  3. TEMODAR [Concomitant]

REACTIONS (1)
  - Death [Fatal]
